FAERS Safety Report 13893995 (Version 7)
Quarter: 2018Q1

REPORT INFORMATION
  Report Type: Spontaneous
  Country: US (occurrence: US)
  Receive Date: 20170822
  Receipt Date: 20180305
  Transmission Date: 20180508
  Serious: No
  Sender: FDA-Public Use
  Company Number: US-ACTELION-A-NJ2017-158333

PATIENT
  Age: 22 Year
  Sex: Male

DRUGS (2)
  1. REMODULIN [Concomitant]
     Active Substance: TREPROSTINIL
  2. OPSUMIT [Suspect]
     Active Substance: MACITENTAN
     Indication: PULMONARY ARTERIAL HYPERTENSION
     Dosage: 10 MG, QD
     Route: 048

REACTIONS (7)
  - Infusion site pain [Unknown]
  - Restlessness [Unknown]
  - Catheter site rash [Unknown]
  - Catheter site injury [Unknown]
  - Diarrhoea [Unknown]
  - Dizziness [Unknown]
  - Catheter site discolouration [Unknown]

NARRATIVE: CASE EVENT DATE: 20170826
